FAERS Safety Report 8057574-1 (Version None)
Quarter: 2012Q1

REPORT INFORMATION
  Report Type: 
  Country: None (occurrence: None)
  Receive Date: 20120120
  Receipt Date: 20120111
  Transmission Date: 20120608
  Serious: Yes (Death)
  Sender: FDA-Public Use
  Company Number: US-BIOGENIDEC-2011BI024974

PATIENT
  Age: 59 Year
  Sex: Male

DRUGS (13)
  1. SUBOXONE [Concomitant]
     Indication: PAIN
     Route: 048
     Dates: start: 20040904
  2. LISINOPRIL [Concomitant]
     Route: 048
     Dates: start: 20090904
  3. BACLOFEN [Concomitant]
     Route: 048
     Dates: start: 20110615
  4. SIMVASTATIN [Concomitant]
     Route: 048
     Dates: start: 20090904
  5. PSUEDOPHEDRINE HYDROCHLORIDE [Concomitant]
     Route: 048
     Dates: start: 20090904
  6. SEROQUEL [Concomitant]
     Route: 048
     Dates: start: 20090904
  7. TYSABRI [Suspect]
     Indication: MULTIPLE SCLEROSIS
     Route: 042
     Dates: start: 20080826, end: 20100201
  8. SERTRALINE HYDROCHLORIDE [Concomitant]
     Route: 048
     Dates: start: 20090904
  9. GABAPENTIN [Concomitant]
     Dates: start: 20090904
  10. FENTANYL-100 [Concomitant]
     Route: 062
  11. NUVIGIL [Concomitant]
     Dates: start: 20090904
  12. PROVIGIL [Concomitant]
     Route: 048
     Dates: start: 20090904
  13. METHOCARBAMOL [Concomitant]
     Route: 048
     Dates: start: 20090904

REACTIONS (1)
  - DEATH [None]
